FAERS Safety Report 9251278 (Version 1)
Quarter: 2013Q1

REPORT INFORMATION
  Report Type: Spontaneous
  Country: US (occurrence: None)
  Receive Date: 20130305
  Receipt Date: 20130305
  Transmission Date: 20140127
  Serious: Yes (Other)
  Sender: FDA-Public Use
  Company Number: 163-21880-12060142 (0)

PATIENT
  Sex: 0

DRUGS (4)
  1. REVLIMID [Suspect]
     Indication: MYELODYSPLASTIC SYNDROME
     Dosage: 10 MG, ON D1-21 IN 28D CYCLES FOR UP TO 9 CYCLES, PO
  2. REVLIMID [Suspect]
     Indication: ACUTE MYELOID LEUKAEMIA
     Dosage: 10 MG, ON D1-21 IN 28D CYCLES FOR UP TO 9 CYCLES, PO
  3. BORTEZOMIB [Suspect]
     Dosage: 0.7, 1.0, OR 1.3 MG/M2, ON DAYS 1, 4, 8, 11, IVB
  4. BORTEZOMIB [Suspect]
     Dosage: 0.7, 1.0, OR 1.3 MG/M2, ON DAYS 1, 4, 8, 11, IVB

REACTIONS (8)
  - Pneumonia [None]
  - Anaemia [None]
  - Thrombocytopenia [None]
  - Leukopenia [None]
  - Infection [None]
  - Rash [None]
  - Dizziness [None]
  - Neuropathy peripheral [None]
